FAERS Safety Report 13787231 (Version 1)
Quarter: 2017Q3

REPORT INFORMATION
  Report Type: Spontaneous
  Country: US (occurrence: US)
  Receive Date: 20170725
  Receipt Date: 20170725
  Transmission Date: 20171127
  Serious: No
  Sender: FDA-Public Use
  Company Number: US-JNJFOC-20170620859

PATIENT
  Age: 57 Year
  Sex: Male
  Weight: 106.6 kg

DRUGS (1)
  1. TYLENOL REGULAR STRENGTH [Suspect]
     Active Substance: ACETAMINOPHEN
     Indication: ANALGESIC THERAPY
     Dosage: 6X PER DAY
     Route: 048
     Dates: start: 20170428

REACTIONS (3)
  - Drug administration error [Unknown]
  - Product lot number issue [Unknown]
  - Drug effect incomplete [Unknown]
